FAERS Safety Report 4380881-0 (Version None)
Quarter: 2004Q2

REPORT INFORMATION
  Report Type: 
  Country: None (occurrence: None)
  Receive Date: 20040616
  Receipt Date: 20040608
  Transmission Date: 20050107
  Serious: Yes (Other)
  Sender: FDA-Public Use
  Company Number: 1515-064

PATIENT
  Age: 79 Year
  Sex: Female

DRUGS (9)
  1. VENOFER [Suspect]
     Indication: IRON DEFICIENCY
     Dosage: 100MG IV
     Route: 042
     Dates: start: 20040430
  2. THYROXIN [Concomitant]
  3. ALLOPURINOL [Concomitant]
  4. FUROSEMIDE [Concomitant]
  5. LANSOPRAZOLE [Concomitant]
  6. MEBEVERINE [Concomitant]
  7. CELECOXIB [Concomitant]
  8. TEMAZEPAM [Concomitant]
  9. LOPERAMIDE HCL [Concomitant]

REACTIONS (5)
  - CHEST PAIN [None]
  - FEELING ABNORMAL [None]
  - PALLOR [None]
  - PULSE PRESSURE DECREASED [None]
  - TACHYCARDIA [None]
